FAERS Safety Report 8257940-5 (Version None)
Quarter: 2012Q2

REPORT INFORMATION
  Report Type: 
  Country: None (occurrence: None)
  Receive Date: 20120404
  Receipt Date: 20111219
  Transmission Date: 20120825
  Serious: Yes (Death, Other)
  Sender: FDA-Public Use
  Company Number: ES-CELGENEUS-144-50794-11120125

PATIENT
  Age: 81 Year

DRUGS (1)
  1. VIDAZA [Suspect]
     Route: 050
     Dates: start: 20110118, end: 20110410

REACTIONS (1)
  - ADVERSE EVENT [None]
